FAERS Safety Report 22227073 (Version 1)
Quarter: 2023Q2

REPORT INFORMATION
  Report Type: Spontaneous
  Country: US (occurrence: US)
  Receive Date: 20230419
  Receipt Date: 20230419
  Transmission Date: 20230722
  Serious: Yes (Other)
  Sender: FDA-Public Use
  Company Number: US-JNJFOC-20230436437

PATIENT
  Age: 7 Decade
  Sex: Male

DRUGS (1)
  1. INVOKANA [Suspect]
     Active Substance: CANAGLIFLOZIN
     Indication: Product used for unknown indication
     Route: 048

REACTIONS (4)
  - Gangrene [Recovering/Resolving]
  - Osteomyelitis acute [Unknown]
  - Foot fracture [Unknown]
  - Toe amputation [Unknown]

NARRATIVE: CASE EVENT DATE: 20170101
